FAERS Safety Report 9467564 (Version 1)
Quarter: 2013Q3

REPORT INFORMATION
  Report Type: Spontaneous
  Country: US (occurrence: None)
  Receive Date: 20130819
  Receipt Date: 20130819
  Transmission Date: 20140515
  Serious: Yes (Hospitalization)
  Sender: FDA-Public Use
  Company Number: None

PATIENT
  Age: 24 Year
  Sex: Female

DRUGS (2)
  1. PITOCIN [Suspect]
     Indication: LABOUR INDUCTION
     Route: 042
     Dates: start: 20081025, end: 20081026
  2. COREG [Concomitant]

REACTIONS (9)
  - Caesarean section [None]
  - Cardiac failure congestive [None]
  - Peripartum cardiomyopathy [None]
  - Vomiting [None]
  - Pallor [None]
  - Fatigue [None]
  - Feeling abnormal [None]
  - Drug ineffective [None]
  - Exposure during pregnancy [None]
